FAERS Safety Report 17412913 (Version 2)
Quarter: 2020Q2

REPORT INFORMATION
  Report Type: Report from Study
  Country: US (occurrence: US)
  Receive Date: 20200213
  Receipt Date: 20200427
  Transmission Date: 20200713
  Serious: No
  Sender: FDA-Public Use
  Company Number: US-ASTRAZENECA-2020SE10700

PATIENT
  Sex: Male

DRUGS (1)
  1. LOKELMA [Suspect]
     Active Substance: SODIUM ZIRCONIUM CYCLOSILICATE
     Indication: BLOOD POTASSIUM ABNORMAL
     Dosage: UNKNOWN
     Route: 048

REACTIONS (7)
  - Joint swelling [Unknown]
  - Toothache [Unknown]
  - Anger [Unknown]
  - Aggression [Unknown]
  - Back pain [Unknown]
  - Abdominal pain upper [Unknown]
  - Confusional state [Unknown]
